FAERS Safety Report 10089392 (Version 2)
Quarter: 2014Q2

REPORT INFORMATION
  Report Type: Spontaneous
  Country: FR (occurrence: FR)
  Receive Date: 20140421
  Receipt Date: 20140421
  Transmission Date: 20141212
  Serious: Yes (Other)
  Sender: FDA-Public Use
  Company Number: FR-PFIZER INC-2014038352

PATIENT
  Age: 68 Year
  Sex: Female

DRUGS (3)
  1. LYRICA [Suspect]
     Indication: DIABETIC NEUROPATHY
     Dosage: 150 MG, DAILY
     Dates: start: 2013
  2. AMAREL [Concomitant]
     Indication: DIABETES MELLITUS
     Dosage: UNK
  3. ISOPTINE [Concomitant]
     Indication: ARRHYTHMIA
     Dosage: UNK

REACTIONS (3)
  - Dermatitis allergic [Recovered/Resolved]
  - Dermatitis bullous [Recovered/Resolved]
  - Lymphoedema [Recovered/Resolved]
